FAERS Safety Report 23187353 (Version 1)
Quarter: 2023Q4

REPORT INFORMATION
  Report Type: Spontaneous
  Country: US (occurrence: None)
  Receive Date: 20231115
  Receipt Date: 20231115
  Transmission Date: 20240109
  Serious: Yes (Life-Threatening, Disabling, Other)
  Sender: FDA-Public Use
  Company Number: None

PATIENT
  Age: 29 Year
  Sex: Female
  Weight: 62.1 kg

DRUGS (2)
  1. NUVARING [Suspect]
     Active Substance: ETHINYL ESTRADIOL\ETONOGESTREL
     Indication: Contraception
     Dosage: OTHER QUANTITY : 1 RING;?FREQUENCY : DAILY;?
     Route: 067
     Dates: start: 20191014, end: 20200920
  2. VYVANSE [Concomitant]
     Active Substance: LISDEXAMFETAMINE DIMESYLATE

REACTIONS (5)
  - Depression [None]
  - Product substitution issue [None]
  - Suicidal ideation [None]
  - Menometrorrhagia [None]
  - Suicide attempt [None]

NARRATIVE: CASE EVENT DATE: 20230913
